FAERS Safety Report 7322677-3 (Version None)
Quarter: 2011Q1

REPORT INFORMATION
  Report Type: 
  Country: None (occurrence: None)
  Receive Date: 20110301
  Receipt Date: 20091230
  Transmission Date: 20110831
  Serious: No
  Sender: FDA-Public Use
  Company Number: US-PFIZER INC-2009316356

PATIENT
  Sex: Male
  Weight: 72.6 kg

DRUGS (4)
  1. GLUCOTROL [Suspect]
     Indication: BLOOD GLUCOSE ABNORMAL
     Dosage: 10 MG, 2X/DAY
     Route: 048
  2. SIMVASTATIN [Concomitant]
     Dosage: 20 MG, 1X/DAY
  3. COZAAR [Concomitant]
     Indication: HYPERTENSION
     Dosage: 100 MG, 1X/DAY
     Route: 048
  4. SITAGLIPTIN PHOSPHATE [Concomitant]
     Dosage: UNIT DOSE: 100;DAILY

REACTIONS (3)
  - BLOOD GLUCOSE ABNORMAL [None]
  - MEDICATION RESIDUE [None]
  - INGROWING NAIL [None]
